FAERS Safety Report 4263707-5 (Version None)
Quarter: 2004Q1

REPORT INFORMATION
  Report Type: 
  Country: None (occurrence: None)
  Receive Date: 20040102
  Receipt Date: 20031218
  Transmission Date: 20041129
  Serious: Yes (Hospitalization)
  Sender: FDA-Public Use
  Company Number: EMADSS2003001365

PATIENT
  Age: 60 Year
  Sex: Female

DRUGS (6)
  1. REMICADE [Suspect]
     Indication: DRUG USE FOR UNKNOWN INDICATION
     Dosage: 5 MG/KG, 1 IN 1 AS NECESSARY, INTRAVENOUS DRIP
     Route: 041
     Dates: start: 20030128, end: 20030128
  2. CYCLOPHOSPHAMIDE [Suspect]
     Indication: DRUG USE FOR UNKNOWN INDICATION
     Dosage: 100 MG, ORAL
     Route: 048
  3. PREDNISOLONE [Concomitant]
  4. CALCIUM CARBONATE (CALCIUM CARBONATE) [Concomitant]
  5. FOSAMAX [Concomitant]
  6. NEXIUM [Concomitant]

REACTIONS (4)
  - AGRANULOCYTOSIS [None]
  - DRUG TOXICITY [None]
  - HYPERSENSITIVITY [None]
  - PYREXIA [None]
